FAERS Safety Report 7179783-6 (Version None)
Quarter: 2010Q4

REPORT INFORMATION
  Report Type: 
  Country: None (occurrence: None)
  Receive Date: 20101221
  Receipt Date: 20101217
  Transmission Date: 20110411
  Serious: Yes (Hospitalization)
  Sender: FDA-Public Use
  Company Number: FR-AMGEN-UK329906

PATIENT

DRUGS (2)
  1. PEGFILGRASTIM [Suspect]
     Indication: CHEMOTHERAPY
     Dosage: 6 MG, UNK
     Route: 058
     Dates: start: 20081216
  2. UNSPECIFIED ANTINEOPLASTIC AGENT [Concomitant]
     Dosage: UNK UNK, UNK
     Route: 065
     Dates: start: 20081215

REACTIONS (1)
  - APLASIA [None]
